FAERS Safety Report 16890194 (Version 1)
Quarter: 2019Q4

REPORT INFORMATION
  Report Type: Spontaneous
  Country: US (occurrence: US)
  Receive Date: 20191004
  Receipt Date: 20191004
  Transmission Date: 20200122
  Serious: Yes (Other)
  Sender: FDA-Public Use
  Company Number: None

PATIENT

DRUGS (1)
  1. PROPOFOL. [Suspect]
     Active Substance: PROPOFOL
     Indication: SURGERY
     Route: 041

REACTIONS (3)
  - Dyskinesia [None]
  - Abnormal dreams [None]
  - Affect lability [None]

NARRATIVE: CASE EVENT DATE: 20191004
